FAERS Safety Report 13813043 (Version 1)
Quarter: 2017Q3

REPORT INFORMATION
  Report Type: Spontaneous
  Country: CA (occurrence: CA)
  Receive Date: 20170731
  Receipt Date: 20170731
  Transmission Date: 20171127
  Serious: Yes (Death)
  Sender: FDA-Public Use
  Company Number: CA-HLSUS-2017-CA-000796

PATIENT
  Age: 59 Year
  Sex: Male

DRUGS (8)
  1. BISACODYL. [Concomitant]
     Active Substance: BISACODYL
     Indication: PRODUCT USED FOR UNKNOWN INDICATION
     Route: 065
  2. ATROPINE 1% [Concomitant]
     Active Substance: ATROPINE
     Indication: PRODUCT USED FOR UNKNOWN INDICATION
     Route: 065
  3. VITAMIN D3 1000 IU [Concomitant]
     Route: 065
  4. CLOZARIL [Suspect]
     Active Substance: CLOZAPINE
     Indication: SCHIZOPHRENIA
  5. LACTULOSE. [Concomitant]
     Active Substance: LACTULOSE
     Route: 065
  6. ROSUVASTATIN. [Concomitant]
     Active Substance: ROSUVASTATIN
     Route: 065
  7. RAMIPRIL. [Concomitant]
     Active Substance: RAMIPRIL
     Route: 065
  8. DIVALPROEX SODIUM. [Concomitant]
     Active Substance: DIVALPROEX SODIUM
     Route: 065

REACTIONS (19)
  - Hyperhidrosis [Unknown]
  - Brain herniation [Fatal]
  - Colitis [Unknown]
  - White blood cell count increased [Unknown]
  - Hypotension [Unknown]
  - Rectal haemorrhage [Unknown]
  - Seizure [Unknown]
  - Brain death [Fatal]
  - Chest pain [Unknown]
  - Colectomy [Unknown]
  - Blood glucose increased [Unknown]
  - Shift to the left [Unknown]
  - Abdominal tenderness [Unknown]
  - Endotracheal intubation [Unknown]
  - Haemodynamic instability [Unknown]
  - Tachycardia [Unknown]
  - Intracranial pressure increased [Unknown]
  - Colitis ischaemic [Fatal]
  - Atrial tachycardia [Unknown]
